FAERS Safety Report 19405708 (Version 1)
Quarter: 2021Q2

REPORT INFORMATION
  Report Type: Spontaneous
  Country: CA (occurrence: CA)
  Receive Date: 20210611
  Receipt Date: 20210611
  Transmission Date: 20210717
  Serious: Yes (Life-Threatening)
  Sender: FDA-Public Use
  Company Number: CA-JUBILANT PHARMA LTD-2021CA000538

PATIENT
  Age: 57 Year
  Sex: Male

DRUGS (3)
  1. LOPRESOR                           /00376902/ [Concomitant]
     Active Substance: METOPROLOL TARTRATE
     Indication: PRODUCT USED FOR UNKNOWN INDICATION
     Dosage: UNK
     Route: 048
  2. ALBUMIN AGGREGATED [Suspect]
     Active Substance: ALBUMIN AGGREGATED
     Indication: PRODUCT USED FOR UNKNOWN INDICATION
     Dosage: 73 MBQ
  3. TECHNETIUM TC 99M [Suspect]
     Active Substance: TECHNETIUM TC-99M
     Indication: PRODUCT USED FOR UNKNOWN INDICATION
     Dosage: 313 MBQ
     Route: 042

REACTIONS (2)
  - Dyspnoea [Unknown]
  - Oedema mouth [Unknown]
